FAERS Safety Report 9802164 (Version 2)
Quarter: 2014Q1

REPORT INFORMATION
  Report Type: Spontaneous
  Country: US (occurrence: US)
  Receive Date: 20140107
  Receipt Date: 20140131
  Transmission Date: 20141002
  Serious: Yes (Hospitalization)
  Sender: FDA-Public Use
  Company Number: US-B.I. PHARMACEUTICALS,INC./RIDGEFIELD-2014-BI-00366BP

PATIENT
  Age: 56 Year
  Sex: Female

DRUGS (1)
  1. CATAPRES TTS [Suspect]
     Indication: HYPERTENSION
     Dosage: 0.3 MG
     Route: 061
     Dates: start: 2012

REACTIONS (3)
  - Hypertension [Recovered/Resolved]
  - Blood pressure increased [Recovered/Resolved]
  - Product quality issue [Unknown]
